FAERS Safety Report 5338192-2 (Version None)
Quarter: 2007Q2

REPORT INFORMATION
  Report Type: 
  Country: None (occurrence: None)
  Receive Date: 20070327
  Receipt Date: 20070209
  Transmission Date: 20071010
  Serious: Yes (Hospitalization, Other)
  Sender: FDA-Public Use
  Company Number: 235856

PATIENT
  Age: 58 Year
  Sex: Female

DRUGS (7)
  1. AVASTIN [Suspect]
     Indication: BREAST CANCER METASTATIC
     Dosage: SEE IMAGE
  2. ABRAXANE [Concomitant]
  3. AREDIA [Concomitant]
  4. OXYCONTIN [Concomitant]
  5. PERCOCET [Concomitant]
  6. ANZEMET [Concomitant]
  7. DECADRON [Concomitant]

REACTIONS (1)
  - NEPHROTIC SYNDROME [None]
